FAERS Safety Report 4626695-5 (Version None)
Quarter: 2005Q2

REPORT INFORMATION
  Report Type: 
  Country: None (occurrence: None)
  Receive Date: 20050405
  Receipt Date: 20050323
  Transmission Date: 20051028
  Serious: Yes (Life-Threatening)
  Sender: FDA-Public Use
  Company Number: NL-JNJFOC-20050300019

PATIENT
  Sex: Female
  Weight: 75.5 kg

DRUGS (5)
  1. BLINDED; INFLIXIMAB, RECOMBINANT [Suspect]
     Indication: RHEUMATOID ARTHRITIS
     Route: 042
  2. SULFASALAZINE [Concomitant]
  3. NEXIUM [Concomitant]
     Indication: GASTRIC DISORDER
  4. NEXIUM [Concomitant]
  5. LIVIAL [Concomitant]

REACTIONS (1)
  - BASAL CELL CARCINOMA [None]
